FAERS Safety Report 7611929-5 (Version None)
Quarter: 2011Q3

REPORT INFORMATION
  Report Type: 
  Country: None (occurrence: None)
  Receive Date: 20110715
  Receipt Date: 20110704
  Transmission Date: 20111222
  Serious: Yes (Other)
  Sender: FDA-Public Use
  Company Number: ES-UCBSA-036505

PATIENT
  Sex: Female

DRUGS (2)
  1. TRANQUIMAZIN [Concomitant]
     Indication: ANXIETY
     Route: 048
  2. KEPPRA [Suspect]
     Indication: EPILEPSY
     Dosage: 250MG MORNING/250MG NOON/500 MG NIGHT
     Route: 048
     Dates: start: 20100423

REACTIONS (2)
  - TOOTH DISCOLOURATION [None]
  - TOOTH LOSS [None]
